FAERS Safety Report 5122917-5 (Version None)
Quarter: 2006Q4

REPORT INFORMATION
  Report Type: 
  Country: None (occurrence: None)
  Receive Date: 20061009
  Receipt Date: 20061005
  Transmission Date: 20070319
  Serious: Yes (Hospitalization)
  Sender: FDA-Public Use
  Company Number: 2006UW19328

PATIENT
  Age: 71 Year
  Sex: Male
  Weight: 129.1 kg

DRUGS (3)
  1. IRESSA [Suspect]
     Indication: METASTATIC RENAL CELL CARCINOMA
     Route: 048
     Dates: start: 20060808
  2. SUNITINIB MALATE [Suspect]
     Indication: METASTATIC RENAL CELL CARCINOMA
     Route: 048
     Dates: start: 20060808, end: 20060905
  3. SUNITINIB MALATE [Suspect]
     Route: 048
     Dates: start: 20060919

REACTIONS (1)
  - GASTROINTESTINAL HAEMORRHAGE [None]
